FAERS Safety Report 19003721 (Version 1)
Quarter: 2021Q1

REPORT INFORMATION
  Report Type: Spontaneous
  Country: DE (occurrence: DE)
  Receive Date: 20210312
  Receipt Date: 20210312
  Transmission Date: 20210420
  Serious: Yes (Life-Threatening, Hospitalization)
  Sender: FDA-Public Use
  Company Number: DE-TEVA-2021-DE-1888044

PATIENT
  Age: 63 Year
  Sex: Male
  Weight: 80 kg

DRUGS (10)
  1. RAMIPRIL. [Suspect]
     Active Substance: RAMIPRIL
     Dosage: 2.5 MILLIGRAM DAILY; 1?0?0?0
     Route: 048
  2. TORASEMID [Suspect]
     Active Substance: TORSEMIDE
     Dosage: 10 MILLIGRAM DAILY; 1?1?0?0
     Route: 048
  3. CLINDAMYCIN. [Suspect]
     Active Substance: CLINDAMYCIN
     Dosage: 1800 MILLIGRAM DAILY; 1?1?1?0
     Route: 048
  4. CEFUROXIM [Concomitant]
     Active Substance: CEFUROXIME
     Dosage: 1000 MILLIGRAM DAILY; 1?0?1?0
     Route: 048
  5. ELIQUIS [Concomitant]
     Active Substance: APIXABAN
     Dosage: 10 MILLIGRAM DAILY; 1?0?1?0
     Route: 048
  6. BACLOFEN. [Concomitant]
     Active Substance: BACLOFEN
     Dosage: 20 MILLIGRAM DAILY; 1?0?1?0
     Route: 048
  7. IPRAMOL TEVA 0,5MG+2,5MG/2,5ML STERI?NEB [Concomitant]
     Dosage: 3 DOSAGE FORMS DAILY; 0.5 | 2.5 MG, 1?1?1?0
     Route: 055
  8. LEVETIRACETAM. [Concomitant]
     Active Substance: LEVETIRACETAM
     Dosage: 2000 MILLIGRAM DAILY; 1?0?1?0
     Route: 048
  9. BISOPROLOL [Suspect]
     Active Substance: BISOPROLOL
     Dosage: PAUSED, UNIT DOSE:5MILLIGRAM
     Route: 048
  10. DIGITOXIN [Suspect]
     Active Substance: DIGITOXIN
     Dosage: .07 MILLIGRAM DAILY; 1?0?0?0
     Route: 048

REACTIONS (3)
  - Bradycardia [Recovering/Resolving]
  - Oliguria [Recovering/Resolving]
  - Pyrexia [Recovering/Resolving]
